FAERS Safety Report 10060652 (Version 1)
Quarter: 2014Q2

REPORT INFORMATION
  Report Type: Spontaneous
  Country: GB (occurrence: GB)
  Receive Date: 20140404
  Receipt Date: 20140404
  Transmission Date: 20141212
  Serious: Yes (Hospitalization)
  Sender: FDA-Public Use
  Company Number: GB-BAUSCH-BL-2014-001558

PATIENT
  Age: 74 Year
  Sex: Female

DRUGS (9)
  1. DEXAMETHASONE [Suspect]
     Indication: PLASMA CELL MYELOMA
     Route: 048
     Dates: start: 20120807
  2. DEXAMETHASONE [Suspect]
     Indication: RENAL FAILURE
  3. BHQ880 [Suspect]
     Indication: PLASMA CELL MYELOMA
     Dates: start: 20120807
  4. BHQ880 [Suspect]
     Indication: RENAL FAILURE
  5. BORTEZOMIB [Suspect]
     Indication: PLASMA CELL MYELOMA
     Dates: start: 20120807, end: 20120904
  6. BORTEZOMIB [Suspect]
     Indication: RENAL FAILURE
  7. DOXAZOSIN [Suspect]
     Indication: HYPERTENSION
     Route: 048
     Dates: start: 2009, end: 20120907
  8. NIFEDIPINE [Suspect]
     Indication: HYPERTENSION
     Route: 048
     Dates: start: 2009, end: 20120907
  9. PROPRANOLOL [Suspect]
     Indication: HYPERTENSION
     Route: 048
     Dates: start: 2009, end: 20120907

REACTIONS (1)
  - Renal failure acute [Recovering/Resolving]
